FAERS Safety Report 8409528-0 (Version None)
Quarter: 2012Q2

REPORT INFORMATION
  Report Type: 
  Country: None (occurrence: None)
  Receive Date: 20120531
  Receipt Date: 20120531
  Transmission Date: 20120825
  Serious: No
  Sender: FDA-Public Use
  Company Number: None

PATIENT
  Sex: Female

DRUGS (1)
  1. CELEXA [Suspect]
     Dosage: 20 MG 1 1/2 QD ORAL
     Route: 048

REACTIONS (3)
  - MUSCLE TWITCHING [None]
  - TREMOR [None]
  - EXTRAPYRAMIDAL DISORDER [None]
